FAERS Safety Report 6225803-2 (Version None)
Quarter: 2009Q2

REPORT INFORMATION
  Report Type: 
  Country: None (occurrence: None)
  Receive Date: 20090612
  Receipt Date: 20090423
  Transmission Date: 20091009
  Serious: Yes (Hospitalization)
  Sender: FDA-Public Use
  Company Number: US-ABBOTT-09P-163-0569929-00

PATIENT
  Sex: Female
  Weight: 55.842 kg

DRUGS (17)
  1. HUMIRA [Suspect]
     Indication: CROHN'S DISEASE
     Route: 058
     Dates: start: 20080401
  2. HUMIRA [Suspect]
     Indication: RHEUMATOID ARTHRITIS
  3. ACIDOPHILIS [Concomitant]
     Indication: CROHN'S DISEASE
     Route: 048
  4. ATIVAN [Concomitant]
     Indication: INSOMNIA
     Route: 048
  5. VITAMIN B-12 [Concomitant]
     Indication: MEDICAL DIET
     Route: 048
  6. CALCIUM [Concomitant]
     Indication: MEDICAL DIET
     Route: 048
  7. NHRT [Concomitant]
     Indication: HORMONE REPLACEMENT THERAPY
     Dosage: 1/5-5 MCG
     Route: 048
  8. MAGNESIUM 50% [Concomitant]
     Indication: MEDICAL DIET
     Route: 050
  9. MULTI-VITAMIN [Concomitant]
     Indication: MEDICAL DIET
     Dosage: UNKNOWN
     Route: 048
  10. PREDNISONE [Concomitant]
     Indication: CROHN'S DISEASE
     Route: 048
  11. PREDNISONE [Concomitant]
     Indication: RHEUMATOID ARTHRITIS
  12. NEXIUM [Concomitant]
     Indication: GASTROOESOPHAGEAL REFLUX DISEASE
     Route: 048
  13. SOHL'S SOLUTION CITRIC ACID SODIUM CITRATE [Concomitant]
     Indication: CROHN'S DISEASE
     Route: 048
  14. TYLENOL (CAPLET) [Concomitant]
     Indication: PAIN
     Route: 048
  15. VITAMIN D [Concomitant]
     Indication: MEDICAL DIET
     Route: 060
  16. DOXEPIN HCL [Concomitant]
     Indication: DEPRESSION
     Dosage: 1 TABLETS DAILY AND 2 TABLETS QHS
  17. ZINC [Concomitant]
     Indication: MEDICAL DIET
     Route: 048

REACTIONS (5)
  - ASTHENIA [None]
  - CLOSTRIDIUM DIFFICILE COLITIS [None]
  - CROHN'S DISEASE [None]
  - FATIGUE [None]
  - WEIGHT DECREASED [None]
